FAERS Safety Report 8621332-7 (Version None)
Quarter: 2012Q3

REPORT INFORMATION
  Report Type: 
  Country: None (occurrence: None)
  Receive Date: 20120824
  Receipt Date: 20120815
  Transmission Date: 20120928
  Serious: Yes (Death, Hospitalization, Disabling, Other)
  Sender: FDA-Public Use
  Company Number: US-009507513-1206USA04647

PATIENT

DRUGS (1)
  1. FOSAMAX [Suspect]
     Indication: ARTHRITIS
     Route: 048

REACTIONS (8)
  - INTERNAL FIXATION OF FRACTURE [None]
  - OFF LABEL USE [None]
  - FALL [None]
  - DEATH [None]
  - OSTEOPOROSIS [None]
  - LOW TURNOVER OSTEOPATHY [None]
  - STRESS FRACTURE [None]
  - FEMUR FRACTURE [None]
